FAERS Safety Report 24385856 (Version 1)
Quarter: 2024Q4

REPORT INFORMATION
  Report Type: Spontaneous
  Country: US (occurrence: US)
  Receive Date: 20241001
  Receipt Date: 20241001
  Transmission Date: 20250115
  Serious: No
  Sender: MERCK
  Company Number: US-009507513-2409USA009304

PATIENT
  Sex: Female
  Weight: 74.83 kg

DRUGS (34)
  1. WINREVAIR [Suspect]
     Active Substance: SOTATERCEPT-CSRK
     Indication: Product used for unknown indication
     Dosage: UNK
     Dates: start: 2024
  2. TREPROSTINIL [Suspect]
     Active Substance: TREPROSTINIL
     Indication: Pulmonary arterial hypertension
     Dosage: 3 MILLIGRAM, TID
     Route: 048
     Dates: start: 2024, end: 2024
  3. ORENITRAM [Suspect]
     Active Substance: TREPROSTINIL
     Indication: Pulmonary arterial hypertension
     Dosage: UNK, STRENGTH: 0.25 MILLIGRAM
     Route: 048
     Dates: start: 20240110
  4. ORENITRAM [Suspect]
     Active Substance: TREPROSTINIL
     Dosage: 2.5 MILLIGRAM, TID
     Route: 048
     Dates: start: 2024
  5. XANAX [Concomitant]
     Active Substance: ALPRAZOLAM
  6. MINERALS\VITAMINS [Concomitant]
     Active Substance: MINERALS\VITAMINS
  7. NEILMED SINUS RINSE [Concomitant]
     Active Substance: SODIUM BICARBONATE\SODIUM CHLORIDE
  8. LEFLUNOMIDE [Concomitant]
     Active Substance: LEFLUNOMIDE
  9. FOLIC ACID [Concomitant]
     Active Substance: FOLIC ACID
  10. REFRESH CELLUVISC [Concomitant]
     Active Substance: CARBOXYMETHYLCELLULOSE SODIUM
  11. IMODIUM [Concomitant]
     Active Substance: LOPERAMIDE HYDROCHLORIDE
  12. TYLENOL EXTRA STRENGTH [Concomitant]
     Active Substance: ACETAMINOPHEN
  13. VOLTAREN ARTHRITIS PAIN [Concomitant]
     Active Substance: DICLOFENAC SODIUM
  14. MUPIROCIN [Concomitant]
     Active Substance: MUPIROCIN
  15. LASIX [Concomitant]
     Active Substance: FUROSEMIDE
  16. ALLOPURINOL [Concomitant]
     Active Substance: ALLOPURINOL
  17. PRAVASTATIN SODIUM [Concomitant]
     Active Substance: PRAVASTATIN SODIUM
  18. DESOXIMETASONE [Concomitant]
     Active Substance: DESOXIMETASONE
  19. ELIQUIS [Concomitant]
     Active Substance: APIXABAN
  20. GABAPENTIN [Concomitant]
     Active Substance: GABAPENTIN
  21. CLARITIN [Concomitant]
     Active Substance: LORATADINE
  22. DILTIAZEM [Concomitant]
     Active Substance: DILTIAZEM
  23. LOMOTIL [Concomitant]
     Active Substance: ATROPINE SULFATE\DIPHENOXYLATE HYDROCHLORIDE
  24. OXYGEN [Concomitant]
     Active Substance: OXYGEN
  25. MONTELUKAST SODIUM [Concomitant]
     Active Substance: MONTELUKAST SODIUM
  26. VITAMIN D3 [Concomitant]
     Active Substance: CHOLECALCIFEROL
  27. ALKALOL [Concomitant]
  28. NYSTATIN [Concomitant]
     Active Substance: NYSTATIN
  29. ACETAMINOPHEN [Concomitant]
     Active Substance: ACETAMINOPHEN
  30. PROAIR DIGIHALER [Concomitant]
     Active Substance: ALBUTEROL SULFATE
  31. ASPIRIN [Concomitant]
     Active Substance: ASPIRIN
  32. POTASSIUM CHLORIDE [Concomitant]
     Active Substance: POTASSIUM CHLORIDE
  33. MUCINEX [Concomitant]
     Active Substance: GUAIFENESIN
  34. ONDANSETRON HYDROCHLORIDE [Concomitant]
     Active Substance: ONDANSETRON HYDROCHLORIDE

REACTIONS (3)
  - Nausea [Unknown]
  - Headache [Unknown]
  - Nasal congestion [Unknown]

NARRATIVE: CASE EVENT DATE: 20240101
